FAERS Safety Report 6815408-4 (Version None)
Quarter: 2010Q3

REPORT INFORMATION
  Report Type: 
  Country: None (occurrence: None)
  Receive Date: 20100702
  Receipt Date: 20100629
  Transmission Date: 20110219
  Serious: Yes (Death)
  Sender: FDA-Public Use
  Company Number: US-GENZYME-MOZO-1000347

PATIENT
  Sex: Male
  Weight: 65 kg

DRUGS (3)
  1. MOZOBIL [Suspect]
     Indication: HAEMATOPOIETIC STEM CELL MOBILISATION
     Dosage: 0.8 ML, QD
     Dates: start: 20090112, end: 20090113
  2. MOZOBIL [Suspect]
     Indication: NON-HODGKIN'S LYMPHOMA
  3. NEUPOGEN [Concomitant]
     Indication: HAEMATOPOIETIC STEM CELL MOBILISATION

REACTIONS (4)
  - BACK PAIN [None]
  - DIARRHOEA [None]
  - INSOMNIA [None]
  - NON-HODGKIN'S LYMPHOMA RECURRENT [None]
